FAERS Safety Report 4273783-1 (Version None)
Quarter: 2004Q1

REPORT INFORMATION
  Report Type: 
  Country: None (occurrence: None)
  Receive Date: 20040114
  Receipt Date: 20040105
  Transmission Date: 20041129
  Serious: Yes (Death, Congenital Anomaly)
  Sender: FDA-Public Use
  Company Number: 2004AP00033

PATIENT
  Sex: Female

DRUGS (1)
  1. CANDESARTAN [Suspect]
     Indication: HYPERTENSION
     Dosage: 8 MG BID

REACTIONS (8)
  - ACIDOSIS [None]
  - ANURIA [None]
  - CAESAREAN SECTION [None]
  - COAGULATION DISORDER NEONATAL [None]
  - COMPLICATIONS OF MATERNAL EXPOSURE TO THERAPEUTIC DRUGS [None]
  - DRUG EXPOSURE DURING PREGNANCY [None]
  - MULTIPLE CONGENITAL ABNORMALITIES [None]
  - SKULL MALFORMATION [None]
